FAERS Safety Report 7040338-5 (Version None)
Quarter: 2010Q4

REPORT INFORMATION
  Report Type: 
  Country: None (occurrence: None)
  Receive Date: 20101012
  Receipt Date: 20101001
  Transmission Date: 20110411
  Serious: Yes (Other)
  Sender: FDA-Public Use
  Company Number: FI-WYE-H18023910

PATIENT
  Sex: Female

DRUGS (6)
  1. CORDARONE [Suspect]
     Indication: ARRHYTHMIA SUPRAVENTRICULAR
     Route: 048
     Dates: start: 19990101, end: 20030101
  2. CORDARONE [Suspect]
     Indication: CARDIAC ARREST
  3. SELOKEN ZOC [Concomitant]
     Dosage: DOSE UNKNOWN
     Route: 065
     Dates: start: 19990101
  4. WARFARIN SODIUM [Concomitant]
     Dosage: DOSE UNKNOWN
     Route: 065
     Dates: start: 19900101
  5. DIASECTRAL [Concomitant]
     Dosage: DOSE UNKNOWN
     Route: 065
     Dates: start: 19990101
  6. ENALAPRIL MALEATE [Concomitant]
     Dosage: DOSE UNKNOWN
     Route: 065

REACTIONS (6)
  - EYE DISORDER [None]
  - HYPERTHYROIDISM [None]
  - LUNG DISORDER [None]
  - PHOTOPHOBIA [None]
  - PSORIASIS [None]
  - TOTAL LUNG CAPACITY DECREASED [None]
